FAERS Safety Report 23922339 (Version 1)
Quarter: 2024Q2

REPORT INFORMATION
  Report Type: Spontaneous
  Country: US (occurrence: US)
  Receive Date: 20240531
  Receipt Date: 20240531
  Transmission Date: 20240715
  Serious: Yes (Other)
  Sender: FDA-Public Use
  Company Number: US-AMAROX PHARMA-HET2024US01539

PATIENT
  Age: 85 Year
  Sex: Male

DRUGS (1)
  1. MEMANTINE [Suspect]
     Active Substance: MEMANTINE
     Indication: Product used for unknown indication
     Dosage: 10 MILLIGRAM, TWICE DAILY FOR 20 YEARS
     Route: 065

REACTIONS (2)
  - Epilepsy [Unknown]
  - Therapy cessation [Unknown]
